FAERS Safety Report 5072201-3 (Version None)
Quarter: 2006Q3

REPORT INFORMATION
  Report Type: 
  Country: None (occurrence: None)
  Receive Date: 20060807
  Receipt Date: 20060727
  Transmission Date: 20061208
  Serious: Yes (Hospitalization)
  Sender: FDA-Public Use
  Company Number: US-JNJFOC-20060601064

PATIENT
  Sex: Female
  Weight: 56.25 kg

DRUGS (3)
  1. REMICADE [Suspect]
     Indication: RHEUMATOID ARTHRITIS
     Route: 042
  2. NSAIDS [Concomitant]
  3. PREDNISONE TAB [Concomitant]

REACTIONS (2)
  - HIP ARTHROPLASTY [None]
  - JOINT DISLOCATION [None]
